FAERS Safety Report 24385811 (Version 1)
Quarter: 2024Q4

REPORT INFORMATION
  Report Type: Spontaneous
  Country: US (occurrence: None)
  Receive Date: 20241001
  Receipt Date: 20241001
  Transmission Date: 20250114
  Serious: No
  Sender: Public
  Company Number: None

PATIENT
  Age: 17 Year
  Sex: Male
  Weight: 66.3 kg

DRUGS (1)
  1. DUPIXENT [Suspect]
     Active Substance: DUPILUMAB
     Indication: Asthma
     Dosage: 300 MG EVERY 2 WEEKS SUBCUTANEOUS
     Route: 058
     Dates: start: 20240816, end: 20241001

REACTIONS (3)
  - Mass [None]
  - Swelling [None]
  - Injection site pain [None]

NARRATIVE: CASE EVENT DATE: 20240930
